FAERS Safety Report 5180019-6 (Version None)
Quarter: 2006Q4

REPORT INFORMATION
  Report Type: 
  Country: None (occurrence: None)
  Receive Date: 20061219
  Receipt Date: 20061018
  Transmission Date: 20070319
  Serious: No
  Sender: FDA-Public Use
  Company Number: US-AMGEN-KDL197457

PATIENT
  Sex: Female

DRUGS (2)
  1. ENBREL [Suspect]
     Indication: ANKYLOSING SPONDYLITIS
     Route: 058
     Dates: start: 20050701
  2. METHOTREXATE [Concomitant]
     Route: 048
     Dates: start: 20060920

REACTIONS (4)
  - BLOOD GLUCOSE DECREASED [None]
  - COUGH [None]
  - FEELING JITTERY [None]
  - INSOMNIA [None]
